FAERS Safety Report 21710561 (Version 21)
Quarter: 2025Q2

REPORT INFORMATION
  Report Type: Report from Study
  Country: US (occurrence: US)
  Receive Date: 20221212
  Receipt Date: 20250609
  Transmission Date: 20250716
  Serious: Yes (Hospitalization, Other)
  Sender: TAKEDA
  Company Number: US-PAREXEL-2021-KAM-US003547

PATIENT
  Age: 71 Year
  Sex: Female
  Weight: 71 kg

DRUGS (50)
  1. GLASSIA [Suspect]
     Active Substance: .ALPHA.1-PROTEINASE INHIBITOR HUMAN
     Indication: Alpha-1 antitrypsin deficiency
     Dosage: UNK UNK, 1/WEEK
  2. GLASSIA [Suspect]
     Active Substance: .ALPHA.1-PROTEINASE INHIBITOR HUMAN
     Dosage: UNK UNK, 1/WEEK
     Dates: start: 20200205
  3. GLASSIA [Suspect]
     Active Substance: .ALPHA.1-PROTEINASE INHIBITOR HUMAN
     Dosage: 60 MILLIGRAM/KILOGRAM, 1/WEEK
  4. EPINEPHRINE [Concomitant]
     Active Substance: EPINEPHRINE
  5. ALPRAZOLAM [Concomitant]
     Active Substance: ALPRAZOLAM
  6. SINGULAIR [Concomitant]
     Active Substance: MONTELUKAST SODIUM
  7. VITAMIN C [Concomitant]
     Active Substance: ASCORBIC ACID
  8. XOLAIR [Concomitant]
     Active Substance: OMALIZUMAB
  9. POTASSIUM CHLORIDE [Concomitant]
     Active Substance: POTASSIUM CHLORIDE
  10. PREDNISONE [Concomitant]
     Active Substance: PREDNISONE
  11. VITAMIN D3 [Concomitant]
     Active Substance: CHOLECALCIFEROL
  12. SODIUM CHLORIDE [Concomitant]
     Active Substance: SODIUM CHLORIDE
  13. ESOMEPRAZOLE MAGNESIUM [Concomitant]
     Active Substance: ESOMEPRAZOLE MAGNESIUM
  14. ALBUTEROL SULFATE [Concomitant]
     Active Substance: ALBUTEROL SULFATE
  15. LASIX [Concomitant]
     Active Substance: FUROSEMIDE
  16. BACLOFEN [Concomitant]
     Active Substance: BACLOFEN
  17. PANTOPRAZOLE SODIUM [Concomitant]
     Active Substance: PANTOPRAZOLE SODIUM
  18. SUCRALFATE [Concomitant]
     Active Substance: SUCRALFATE
  19. DIPHENHYDRAMINE [Concomitant]
     Active Substance: DIPHENHYDRAMINE
  20. CODEINE\PROMETHAZINE [Concomitant]
     Active Substance: CODEINE\PROMETHAZINE
  21. HYDROXYCHLOROQUINE SULFATE [Concomitant]
     Active Substance: HYDROXYCHLOROQUINE SULFATE
  22. OXYGEN [Concomitant]
     Active Substance: OXYGEN
  23. COLCHICINE [Concomitant]
     Active Substance: COLCHICINE
  24. Estrogens esterified;Methyltestosterone [Concomitant]
  25. ONDANSETRON HYDROCHLORIDE [Concomitant]
     Active Substance: ONDANSETRON HYDROCHLORIDE
  26. LOPERAMIDE [Concomitant]
     Active Substance: LOPERAMIDE
  27. LISINOPRIL [Concomitant]
     Active Substance: LISINOPRIL
  28. ALBUTEROL [Concomitant]
     Active Substance: ALBUTEROL
  29. SPIRONOLACTONE [Concomitant]
     Active Substance: SPIRONOLACTONE
  30. VITAMINS [Concomitant]
     Active Substance: VITAMINS
  31. ASPIRIN [Concomitant]
     Active Substance: ASPIRIN
  32. COMBIVENT RESPIMAT [Concomitant]
     Active Substance: ALBUTEROL SULFATE\IPRATROPIUM BROMIDE
  33. FLOVENT [Concomitant]
     Active Substance: FLUTICASONE PROPIONATE
  34. VENTOLIN [Concomitant]
     Active Substance: ALBUTEROL SULFATE
  35. SYMBICORT [Concomitant]
     Active Substance: BUDESONIDE\FORMOTEROL FUMARATE DIHYDRATE
  36. AMOXICILLIN [Concomitant]
     Active Substance: AMOXICILLIN
  37. CORTISPORIN-TC [Concomitant]
     Active Substance: COLISTIN SULFATE\HYDROCORTISONE ACETATE\NEOMYCIN SULFATE\THONZONIUM BROMIDE
  38. IBUPROFEN [Concomitant]
     Active Substance: IBUPROFEN
  39. PANTOPRAZOLE [Concomitant]
     Active Substance: PANTOPRAZOLE
  40. DUPIXENT [Concomitant]
     Active Substance: DUPILUMAB
  41. DIPHENHYDRAMINE HYDROCHLORIDE [Concomitant]
     Active Substance: DIPHENHYDRAMINE HYDROCHLORIDE
  42. HYDROXYCHLOROQUINE [Concomitant]
     Active Substance: HYDROXYCHLOROQUINE
  43. LOSARTAN POTASSIUM [Concomitant]
     Active Substance: LOSARTAN POTASSIUM
  44. ATORVASTATIN CALCIUM [Concomitant]
     Active Substance: ATORVASTATIN CALCIUM
  45. BENZONATATE [Concomitant]
     Active Substance: BENZONATATE
  46. ELIQUIS [Concomitant]
     Active Substance: APIXABAN
  47. SERTRALINE HYDROCHLORIDE [Concomitant]
     Active Substance: SERTRALINE HYDROCHLORIDE
  48. ACETAMINOPHEN\HYDROCODONE [Concomitant]
     Active Substance: ACETAMINOPHEN\HYDROCODONE
  49. DOXYCYCLINE HYCLATE [Concomitant]
     Active Substance: DOXYCYCLINE HYCLATE
  50. BUDESONIDE\FORMOTEROL FUMARATE [Concomitant]
     Active Substance: BUDESONIDE\FORMOTEROL FUMARATE

REACTIONS (25)
  - Pericarditis [Unknown]
  - Cerebrovascular accident [Unknown]
  - Pneumonia [Unknown]
  - Chills [Unknown]
  - Chest pain [Unknown]
  - Gastrointestinal infection [Unknown]
  - Abdominal pain upper [Unknown]
  - Ear infection [Unknown]
  - Oropharyngeal pain [Unknown]
  - COVID-19 [Unknown]
  - Allergy to plants [Unknown]
  - Gait disturbance [Unknown]
  - Inappropriate schedule of product administration [Unknown]
  - Speech disorder [Unknown]
  - Product dose omission issue [Unknown]
  - Feeling hot [Unknown]
  - Tremor [Unknown]
  - Respiratory tract infection [Recovering/Resolving]
  - Productive cough [Not Recovered/Not Resolved]
  - Oxygen saturation abnormal [Unknown]
  - Pyrexia [Recovering/Resolving]
  - Malaise [Unknown]
  - Myalgia [Unknown]
  - Asthma [Unknown]
  - Dyspnoea [Unknown]

NARRATIVE: CASE EVENT DATE: 20240714
